FAERS Safety Report 15627736 (Version 2)
Quarter: 2018Q4

REPORT INFORMATION
  Report Type: Spontaneous
  Country: US (occurrence: US)
  Receive Date: 20181116
  Receipt Date: 20181201
  Transmission Date: 20190205
  Serious: No
  Sender: FDA-Public Use
  Company Number: US-ASTRAZENECA-2018SF19718

PATIENT
  Sex: Female

DRUGS (2)
  1. SYMBICORT [Suspect]
     Active Substance: BUDESONIDE\FORMOTEROL FUMARATE DIHYDRATE
     Indication: ASTHMA
     Dosage: 80/4.5 MCG ONE RESPIRATORY INHALATION TWO TIMES A DAY
     Route: 055
     Dates: start: 20180731
  2. SYMBICORT [Suspect]
     Active Substance: BUDESONIDE\FORMOTEROL FUMARATE DIHYDRATE
     Indication: ASTHMA
     Dosage: 80/4.5 MCG ONE RESPIRATORY INHALATION TWO TIMES A DAY
     Route: 055
     Dates: start: 20180801

REACTIONS (4)
  - Dyspnoea [Unknown]
  - Intentional device misuse [Unknown]
  - Product prescribing error [Unknown]
  - Device malfunction [Unknown]
